FAERS Safety Report 12594506 (Version 1)
Quarter: 2016Q3

REPORT INFORMATION
  Report Type: Spontaneous
  Country: US (occurrence: US)
  Receive Date: 20160726
  Receipt Date: 20160726
  Transmission Date: 20161109
  Serious: No
  Sender: FDA-Public Use
  Company Number: US-UNITED THERAPEUTICS-UNT-2015-016104

PATIENT
  Age: 31 Year
  Sex: Female
  Weight: 163.26 kg

DRUGS (11)
  1. ORENITRAM [Suspect]
     Active Substance: TREPROSTINIL
     Dosage: 0.5 MG, TID
     Route: 048
  2. LETAIRIS [Suspect]
     Active Substance: AMBRISENTAN
     Dosage: UNK
     Dates: start: 20150520
  3. ADCIRCA [Concomitant]
     Active Substance: TADALAFIL
     Indication: PRODUCT USED FOR UNKNOWN INDICATION
     Route: 065
  4. ORENITRAM [Suspect]
     Active Substance: TREPROSTINIL
     Indication: PULMONARY HYPERTENSION
     Dosage: 0.3 MG, TID
     Route: 048
     Dates: start: 20151130
  5. ORENITRAM [Suspect]
     Active Substance: TREPROSTINIL
     Dosage: UNK
     Route: 048
  6. WARFARIN [Concomitant]
     Active Substance: WARFARIN
     Indication: PRODUCT USED FOR UNKNOWN INDICATION
     Route: 065
  7. LETAIRIS [Suspect]
     Active Substance: AMBRISENTAN
     Indication: PRODUCT USED FOR UNKNOWN INDICATION
     Dosage: 10 MG, QD
     Route: 048
     Dates: start: 20150522
  8. ORENITRAM [Suspect]
     Active Substance: TREPROSTINIL
     Dosage: 0.125 MG, TID
     Route: 048
     Dates: start: 20151211
  9. ORENITRAM [Suspect]
     Active Substance: TREPROSTINIL
     Indication: PULMONARY ARTERIAL HYPERTENSION
     Dosage: UNK
     Route: 048
  10. ORENITRAM [Suspect]
     Active Substance: TREPROSTINIL
     Dosage: 0.375 MG,TID
     Route: 048
     Dates: start: 20151230
  11. ORENITRAM [Suspect]
     Active Substance: TREPROSTINIL
     Dosage: 0.375 MG, Q8H
     Route: 048

REACTIONS (7)
  - Weight increased [Unknown]
  - Headache [Not Recovered/Not Resolved]
  - Nausea [Unknown]
  - Diarrhoea [Unknown]
  - Abdominal discomfort [Unknown]
  - Flushing [Unknown]
  - Nasal congestion [Unknown]

NARRATIVE: CASE EVENT DATE: 20151130
